FAERS Safety Report 8445910-3 (Version None)
Quarter: 2012Q2

REPORT INFORMATION
  Report Type: 
  Country: None (occurrence: None)
  Receive Date: 20120618
  Receipt Date: 20120611
  Transmission Date: 20120825
  Serious: Yes (Hospitalization)
  Sender: FDA-Public Use
  Company Number: LB-ABBOTT-12P-093-0945504-00

PATIENT
  Sex: Female
  Weight: 61 kg

DRUGS (3)
  1. HUMIRA [Suspect]
  2. HUMIRA [Suspect]
     Indication: CROHN'S DISEASE
     Dosage: LOADING DOSE 160MG
     Route: 058
     Dates: start: 20120224, end: 20120224
  3. HUMIRA [Suspect]
     Dosage: LOADING DOSE 80MG

REACTIONS (2)
  - GASTROINTESTINAL HAEMORRHAGE [None]
  - FATIGUE [None]
